FAERS Safety Report 4758677-7 (Version None)
Quarter: 2005Q3

REPORT INFORMATION
  Report Type: 
  Country: None (occurrence: None)
  Receive Date: 20050901
  Receipt Date: 20050822
  Transmission Date: 20060218
  Serious: Yes (Other)
  Sender: FDA-Public Use
  Company Number: DE-BRISTOL-MYERS SQUIBB COMPANY-13087168

PATIENT
  Age: 71 Year
  Sex: Female

DRUGS (7)
  1. VOLON-A INJ 40 MG [Suspect]
     Indication: MACULAR OEDEMA
     Route: 031
     Dates: start: 20050729, end: 20050729
  2. VOLON-A INJ 40 MG [Suspect]
     Indication: VASCULAR OCCLUSION
     Route: 031
     Dates: start: 20050729, end: 20050729
  3. BISOPROLOL [Concomitant]
     Route: 048
  4. IRBESARTAN [Concomitant]
     Route: 048
  5. L-THYROXINE [Concomitant]
     Route: 048
  6. CONJUGATED ESTROGENS [Concomitant]
     Route: 048
  7. ASPIRIN [Concomitant]
     Route: 048

REACTIONS (1)
  - ENDOPHTHALMITIS [None]
